FAERS Safety Report 5066101-2 (Version None)
Quarter: 2006Q3

REPORT INFORMATION
  Report Type: 
  Country: None (occurrence: None)
  Receive Date: 20060725
  Receipt Date: 20060714
  Transmission Date: 20061208
  Serious: Yes (Hospitalization, Other)
  Sender: FDA-Public Use
  Company Number: 280001M06JPN

PATIENT
  Age: 34 Year
  Sex: Female
  Weight: 48 kg

DRUGS (5)
  1. FERTINORM P (MENOTROPHIN) [Suspect]
     Indication: INFERTILITY
     Dosage: 75 IU, 1 IN 1 DAYS
     Dates: start: 20060518, end: 20060521
  2. PERGOGREEN (MENOTROPHIN) [Suspect]
     Indication: INFERTILITY
     Dosage: 75 IU, 1 IN 1 DAYS
     Dates: start: 20060522, end: 20060524
  3. BUSERELIN /00771601/ [Concomitant]
  4. MEDROXYPROGESTERONE ACETATE [Concomitant]
  5. EUGYNON [Concomitant]

REACTIONS (3)
  - FALSE POSITIVE LABORATORY RESULT [None]
  - HAEMORRHAGE [None]
  - HEPATITIS C [None]
